FAERS Safety Report 6294403-0 (Version None)
Quarter: 2009Q3

REPORT INFORMATION
  Report Type: 
  Country: None (occurrence: None)
  Receive Date: 20090731
  Receipt Date: 20090731
  Transmission Date: 20100115
  Serious: Yes (Other)
  Sender: FDA-Public Use
  Company Number: None

PATIENT
  Sex: Female
  Weight: 95.2554 kg

DRUGS (1)
  1. LAMOTRIGINE [Suspect]
     Dosage: 300MG DAILY PO
     Route: 048
     Dates: start: 20081001, end: 20081201

REACTIONS (4)
  - DIPLOPIA [None]
  - DISTURBANCE IN ATTENTION [None]
  - MOOD SWINGS [None]
  - PRODUCT SUBSTITUTION ISSUE [None]
